FAERS Safety Report 9844595 (Version 1)
Quarter: 2014Q1

REPORT INFORMATION
  Report Type: Spontaneous
  Country: US (occurrence: None)
  Receive Date: 20140123
  Receipt Date: 20140123
  Transmission Date: 20141002
  Serious: Yes (Hospitalization, Other)
  Sender: FDA-Public Use
  Company Number: 1401-0117

PATIENT
  Age: 77 Year
  Sex: Female
  Weight: 77.11 kg

DRUGS (4)
  1. EYLEA (AFLIBERCEPT) (INJECTION) (AFLIBERCEPT) [Suspect]
     Indication: AGE-RELATED MACULAR DEGENERATION
     Dosage: 1 IN 4 WK, INTRAVITREAL
     Dates: start: 201310
  2. COUMADIN [Suspect]
     Indication: ATRIAL FIBRILLATION
  3. ANTIBACTERIAL EYE DROPS [Concomitant]
  4. STEROID EYE DROPS [Concomitant]

REACTIONS (3)
  - Transient ischaemic attack [None]
  - International normalised ratio increased [None]
  - Cataract operation [None]
